FAERS Safety Report 7943532-1 (Version None)
Quarter: 2011Q4

REPORT INFORMATION
  Report Type: 
  Country: None (occurrence: None)
  Receive Date: 20111128
  Receipt Date: 20111121
  Transmission Date: 20120403
  Serious: Yes (Hospitalization, Other)
  Sender: FDA-Public Use
  Company Number: PHHY2011US102292

PATIENT
  Age: 70 Year
  Sex: Male

DRUGS (1)
  1. LORAZEPAM [Suspect]
     Indication: NAUSEA
     Dosage: 60 MG, Q4H
     Route: 042

REACTIONS (3)
  - UNRESPONSIVE TO STIMULI [None]
  - OVERDOSE [None]
  - DRUG PRESCRIBING ERROR [None]
